FAERS Safety Report 8950341 (Version 1)
Quarter: 2012Q4

REPORT INFORMATION
  Report Type: Spontaneous
  Country: US (occurrence: None)
  Receive Date: 20121130
  Receipt Date: 20121130
  Transmission Date: 20130627
  Serious: Yes (Hospitalization)
  Sender: FDA-Public Use
  Company Number: None

PATIENT
  Age: 59 Year
  Sex: Female
  Weight: 56.7 kg

DRUGS (2)
  1. CHANTIX [Suspect]
     Indication: COPD
     Dosage: 1 MG  2x/day po
     Route: 048
     Dates: start: 20121108, end: 20121126
  2. CHANTIX [Suspect]
     Indication: SMOKING CESSATION THERAPY
     Dosage: 1 MG  2x/day po
     Route: 048
     Dates: start: 20121108, end: 20121126

REACTIONS (7)
  - Vision blurred [None]
  - Palpitations [None]
  - Feeling abnormal [None]
  - Contusion [None]
  - Convulsion [None]
  - Sensory disturbance [None]
  - Ageusia [None]
